FAERS Safety Report 19846156 (Version 1)
Quarter: 2021Q3

REPORT INFORMATION
  Report Type: Other
  Country: US (occurrence: US)
  Receive Date: 20210917
  Receipt Date: 20210917
  Transmission Date: 20211014
  Serious: Yes (Death)
  Sender: FDA-Public Use
  Company Number: US-ROCHE-2906483

PATIENT
  Age: 69 Year
  Sex: Male

DRUGS (3)
  1. MYCOPHENOLATE MOFETIL. [Suspect]
     Active Substance: MYCOPHENOLATE MOFETIL
     Indication: PROPHYLAXIS AGAINST TRANSPLANT REJECTION
     Route: 065
  2. PREDNISONE. [Suspect]
     Active Substance: PREDNISONE
     Indication: PROPHYLAXIS AGAINST TRANSPLANT REJECTION
     Route: 065
  3. PREDNISONE. [Suspect]
     Active Substance: PREDNISONE
     Dosage: REDUCED TO 5 MG DAILY ON DAY 8
     Route: 065

REACTIONS (5)
  - Fungal infection [Unknown]
  - Pneumonia fungal [Fatal]
  - Respiratory failure [Fatal]
  - Phaeohyphomycotic brain abscess [Fatal]
  - Cerebral fungal infection [Fatal]
